FAERS Safety Report 4718402-2 (Version None)
Quarter: 2005Q3

REPORT INFORMATION
  Report Type: 
  Country: None (occurrence: None)
  Receive Date: 20050720
  Receipt Date: 20050711
  Transmission Date: 20060218
  Serious: Yes (Hospitalization, Disabling)
  Sender: FDA-Public Use
  Company Number: GB-NOVOPROD-245426

PATIENT
  Age: 47 Year
  Sex: Female

DRUGS (6)
  1. LEVEMIR [Suspect]
     Indication: ILL-DEFINED DISORDER
     Route: 058
     Dates: start: 20050501, end: 20050601
  2. NOVORAPID [Suspect]
     Indication: ILL-DEFINED DISORDER
     Route: 058
     Dates: start: 20050501, end: 20050601
  3. ATORVASTATIN CALCIUM [Concomitant]
  4. ARTHROTEC [Concomitant]
  5. DIHYDROCODEINE [Concomitant]
  6. ACETAMINOPHEN [Concomitant]

REACTIONS (1)
  - POLYARTHRITIS [None]
